FAERS Safety Report 15506957 (Version 1)
Quarter: 2018Q4

REPORT INFORMATION
  Report Type: Spontaneous
  Country: FR (occurrence: FR)
  Receive Date: 20181016
  Receipt Date: 20181016
  Transmission Date: 20190205
  Serious: Yes (Hospitalization)
  Sender: FDA-Public Use
  Company Number: FR-BAXTER-2018BAX025337

PATIENT
  Age: 54 Year
  Sex: Male
  Weight: 88 kg

DRUGS (3)
  1. METRONIDAZOLE BAXTER 0,5 POUR CENT, SOLUTION INJECTABLE EN POCHE [Suspect]
     Active Substance: METRONIDAZOLE
     Indication: PORTAL VEIN PHLEBITIS
     Route: 042
     Dates: start: 20180626, end: 20180719
  2. CEFTRIAXONE PANPHARMA [Suspect]
     Active Substance: CEFTRIAXONE
     Indication: PORTAL VEIN PHLEBITIS
     Route: 042
     Dates: start: 20180626, end: 20180719
  3. PREVISCAN (FLUINDIONE) [Suspect]
     Active Substance: FLUINDIONE
     Indication: PORTAL VEIN PHLEBITIS
     Dosage: SCORED TABLET
     Route: 048
     Dates: start: 20180627, end: 20180719

REACTIONS (1)
  - Agranulocytosis [Recovered/Resolved]

NARRATIVE: CASE EVENT DATE: 20180719
